FAERS Safety Report 4426012-X (Version None)
Quarter: 2004Q3

REPORT INFORMATION
  Report Type: 
  Country: None (occurrence: None)
  Receive Date: 20040719
  Receipt Date: 20040325
  Transmission Date: 20050211
  Serious: No
  Sender: FDA-Public Use
  Company Number: A03200400957

PATIENT
  Sex: Male

DRUGS (1)
  1. UROXATRAL [Suspect]
     Dosage: PATIENT TOOK TWO DOSES - ORAL
     Route: 048
     Dates: start: 20040301, end: 20040301

REACTIONS (2)
  - DERMATITIS ALLERGIC [None]
  - DRUG HYPERSENSITIVITY [None]
